FAERS Safety Report 4637315-8 (Version None)
Quarter: 2005Q2

REPORT INFORMATION
  Report Type: 
  Country: None (occurrence: None)
  Receive Date: 20050328
  Receipt Date: 20041119
  Transmission Date: 20051028
  Serious: No
  Sender: FDA-Public Use
  Company Number: USA041184294

PATIENT
  Age: 56 Year
  Sex: Female
  Weight: 66 kg

DRUGS (13)
  1. STRATTERA [Suspect]
     Indication: ATTENTION DEFICIT/HYPERACTIVITY DISORDER
     Dosage: 120 MG DAY
     Dates: start: 20040901, end: 20041220
  2. PROZAC [Suspect]
     Indication: DEPRESSION
     Dosage: 80 MG DAY
  3. SYNTHROID [Concomitant]
  4. KADIAN [Concomitant]
  5. ESTRADIOL [Concomitant]
  6. CYTOMEL [Concomitant]
  7. ACIDOPHILUS [Concomitant]
  8. EFFEXOR [Concomitant]
  9. WELLBUTRIN [Concomitant]
  10. DEXEDRINE [Concomitant]
  11. ACETAMINOPHEN AND HYDROCODONE BITARTRATE [Concomitant]
  12. SENOKOT(SENNA ALEXANDRINA) [Concomitant]
  13. COLACE(DOCUSATE SODIUM) [Concomitant]

REACTIONS (7)
  - CHROMATURIA [None]
  - DIARRHOEA [None]
  - INFLUENZA LIKE ILLNESS [None]
  - MALAISE [None]
  - PRESCRIBED OVERDOSE [None]
  - PRURITUS [None]
  - WEIGHT DECREASED [None]
